FAERS Safety Report 7767708-1 (Version None)
Quarter: 2011Q3

REPORT INFORMATION
  Report Type: 
  Country: None (occurrence: None)
  Receive Date: 20110922
  Receipt Date: 20110920
  Transmission Date: 20111222
  Serious: Yes (Other)
  Sender: FDA-Public Use
  Company Number: US-PFIZER INC-2011223814

PATIENT
  Sex: Female
  Weight: 117.9 kg

DRUGS (9)
  1. OXYCONTIN [Concomitant]
     Dosage: UNK
  2. LYRICA [Suspect]
     Indication: FIBROMYALGIA
  3. GLIPIZIDE [Concomitant]
     Dosage: UNK
  4. LYRICA [Suspect]
     Indication: MUSCULOSKELETAL DISORDER
     Dosage: UNK
     Route: 048
     Dates: start: 20060101
  5. COUMADIN [Concomitant]
     Dosage: UNK
  6. METOPROLOL [Concomitant]
     Dosage: UNK
  7. PROZAC [Concomitant]
     Dosage: UNK
  8. VALIUM [Concomitant]
     Dosage: UNK
  9. JANUMET [Concomitant]
     Dosage: UNK

REACTIONS (3)
  - NEUROPATHY PERIPHERAL [None]
  - DRUG EFFECT DECREASED [None]
  - NEOPLASM MALIGNANT [None]
